FAERS Safety Report 9062532 (Version 1)
Quarter: 2013Q1

REPORT INFORMATION
  Report Type: Spontaneous
  Country: US (occurrence: US)
  Receive Date: 20130111
  Receipt Date: 20130111
  Transmission Date: 20140127
  Serious: No
  Sender: FDA-Public Use
  Company Number: US-VIIV HEALTHCARE LIMITED-A0984457A

PATIENT
  Age: 60 Year
  Sex: Male

DRUGS (5)
  1. COMBIVIR [Suspect]
     Indication: HIV INFECTION
     Dosage: 200MG TWICE PER DAY
     Route: 048
  2. REYATAZ [Concomitant]
  3. TOPROL XL [Concomitant]
  4. LISINOPRIL [Concomitant]
  5. UNKNOWN [Concomitant]

REACTIONS (1)
  - T-lymphocyte count decreased [Not Recovered/Not Resolved]
